FAERS Safety Report 8846439 (Version 3)
Quarter: 2012Q4

REPORT INFORMATION
  Report Type: Report from Study
  Country: HU (occurrence: HU)
  Receive Date: 20121017
  Receipt Date: 20121203
  Transmission Date: 20130627
  Serious: Yes (Hospitalization)
  Sender: FDA-Public Use
  Company Number: HU-PFIZER INC-2012256507

PATIENT
  Age: 66 Year
  Sex: Male

DRUGS (7)
  1. SUNITINIB MALATE [Suspect]
     Indication: METASTATIC RENAL CELL CARCINOMA
     Dosage: 50 mg, 1x/day
     Route: 048
     Dates: start: 20120528, end: 20120624
  2. SUNITINIB MALATE [Suspect]
     Dosage: 50 mg, 1x/day
     Route: 048
     Dates: start: 20120709, end: 20120805
  3. SUNITINIB MALATE [Suspect]
     Dosage: 50 mg, 1x/day
     Route: 048
     Dates: start: 20120820, end: 20120916
  4. TAMSULOSIN [Concomitant]
     Indication: HYPERTENSION
     Dosage: UNK
     Dates: start: 20111116, end: 20120709
  5. CARVEDILOL [Concomitant]
     Indication: HYPERTENSION
     Dosage: UNK
     Dates: start: 2007, end: 20120709
  6. RAMIPRIL [Concomitant]
     Indication: HYPERTENSION
     Dosage: UNK
     Dates: start: 20120615, end: 20120709
  7. COVEREX [Concomitant]
     Indication: HYPERTENSION
     Dosage: UNK
     Dates: start: 20120709

REACTIONS (1)
  - Atrial fibrillation [Recovered/Resolved with Sequelae]
